FAERS Safety Report 7174345-9 (Version None)
Quarter: 2010Q4

REPORT INFORMATION
  Report Type: 
  Country: None (occurrence: None)
  Receive Date: 20101215
  Receipt Date: 20101215
  Transmission Date: 20110411
  Serious: No
  Sender: FDA-Public Use
  Company Number: None

PATIENT
  Age: 76 Year
  Sex: Female
  Weight: 65.7716 kg

DRUGS (1)
  1. PROPOXYPHENE HYDROCHLORIDE [Suspect]
     Indication: BACK PAIN
     Dosage: 1 EVERY 6 HRS.

REACTIONS (4)
  - CARDIAC DISORDER [None]
  - CHEST PAIN [None]
  - DIZZINESS [None]
  - SYNCOPE [None]
